FAERS Safety Report 9096504 (Version 2)
Quarter: 2013Q1

REPORT INFORMATION
  Report Type: Spontaneous
  Country: BR (occurrence: BR)
  Receive Date: 20130211
  Receipt Date: 20130313
  Transmission Date: 20140127
  Serious: Yes (Death, Other)
  Sender: FDA-Public Use
  Company Number: PHHY2013BR012069

PATIENT
  Age: 79 Year
  Sex: Male
  Weight: 60 kg

DRUGS (11)
  1. FORASEQ [Suspect]
     Indication: BRONCHITIS
     Dosage: 1 DF, BID
     Dates: start: 201205
  2. AAS [Concomitant]
     Indication: BLOOD DISORDER
     Dosage: 1 DF, QD
     Route: 048
  3. PREDNISONE [Concomitant]
     Dosage: 1 DF, QD
     Route: 048
     Dates: start: 201207
  4. MONOCORDIL [Concomitant]
     Indication: CARDIAC DISORDER
     Dosage: 2 DF, QD
     Route: 048
  5. LOSARTAN [Concomitant]
     Indication: BLOOD PRESSURE
     Dosage: 2 DF, QD
     Route: 048
     Dates: start: 201205
  6. AMLODIPINE [Concomitant]
     Dosage: 2 DF, QD
     Route: 048
     Dates: start: 201205
  7. SIMVASTATIN [Concomitant]
     Dosage: 1 DF, QD
     Route: 048
     Dates: start: 201205
  8. ALOPURINOL [Concomitant]
     Indication: RENAL DISORDER
     Dosage: 1 DF, QD
     Route: 048
  9. ACETYLCYSTEINE [Concomitant]
     Indication: LUNG DISORDER
     Dosage: (1 SACHET), QD
     Route: 048
     Dates: start: 201205
  10. PANTOPRAZOLE [Concomitant]
     Indication: ABDOMINAL DISCOMFORT
     Dosage: 1 DF, QD
     Route: 048
     Dates: start: 201205
  11. NPH INSULIN [Concomitant]
     Indication: DIABETES MELLITUS
     Dosage: 10 U, QD
     Route: 058
     Dates: start: 201205

REACTIONS (3)
  - Pulmonary fibrosis [Fatal]
  - Renal disorder [Not Recovered/Not Resolved]
  - Diabetes mellitus [Unknown]
